FAERS Safety Report 6543757-6 (Version None)
Quarter: 2010Q1

REPORT INFORMATION
  Report Type: 
  Country: None (occurrence: None)
  Receive Date: 20100120
  Receipt Date: 20091225
  Transmission Date: 20100710
  Serious: Yes (Death)
  Sender: FDA-Public Use
  Company Number: US-BAYER-201011514GPV

PATIENT
  Age: 30 Year
  Sex: Female

DRUGS (3)
  1. DIPHENHYDRAMINE [Suspect]
  2. ACETAMINOPHEN W/DIPHENHYDRAMINE [Suspect]
  3. ACAMPROSATE [Suspect]

REACTIONS (1)
  - DRUG TOXICITY [None]
